FAERS Safety Report 7088176-1 (Version None)
Quarter: 2010Q4

REPORT INFORMATION
  Report Type: 
  Country: None (occurrence: None)
  Receive Date: 20101108
  Receipt Date: 20101102
  Transmission Date: 20110411
  Serious: Yes (Hospitalization)
  Sender: FDA-Public Use
  Company Number: US-ELI_LILLY_AND_COMPANY-US201005002867

PATIENT
  Sex: Male
  Weight: 75.45 kg

DRUGS (19)
  1. GEMCITABINE HCL [Suspect]
     Indication: NON-SMALL CELL LUNG CANCER STAGE IIIB
     Dosage: 1950 MG, OTHER
     Route: 042
     Dates: start: 20100419, end: 20100419
  2. GEMCITABINE HCL [Suspect]
     Dosage: 1930 MG, OTHER
     Route: 042
     Dates: start: 20100427, end: 20100427
  3. CETUXIMAB [Suspect]
     Indication: NON-SMALL CELL LUNG CANCER STAGE IIIB
     Dosage: 482 MG, OTHER
     Route: 042
     Dates: start: 20100419, end: 20100427
  4. CISPLATIN [Suspect]
     Indication: NON-SMALL CELL LUNG CANCER STAGE IIIB
     Dosage: 145 MG, OTHER
     Route: 042
     Dates: start: 20100419, end: 20100419
  5. ATENOLOL [Concomitant]
     Dosage: 25 MG, DAILY (1/D)
  6. ASPIRIN [Concomitant]
     Dosage: 81 MG, DAILY (1/D)
  7. PRAVASTATIN [Concomitant]
     Dosage: 40 MG, EACH EVENING
  8. TRIAMTERENE AND HYDROCHLOROTHIAZID [Concomitant]
     Dosage: 1 D/F, DAILY (1/D)
  9. ALPRAZOLAM [Concomitant]
     Indication: ANXIETY
     Dosage: 0.25 MG, AS NEEDED
     Dates: start: 20100406
  10. VALIUM [Concomitant]
     Dosage: 10 MG, DAILY (1/D)
     Dates: start: 20100407
  11. PROCHLORPERAZINE [Concomitant]
     Indication: NAUSEA
     Dosage: 10 MG, AS NEEDED
     Dates: start: 20100419
  12. EMEND [Concomitant]
     Dates: start: 20100419, end: 20100421
  13. NEXIUM [Concomitant]
     Dosage: 20 MG, DAILY (1/D)
     Dates: start: 20100419
  14. DOXYCYCLINE [Concomitant]
     Dosage: 100 MG, 2/D
     Dates: start: 20100427, end: 20100428
  15. ZOFRAN [Concomitant]
  16. ATIVAN [Concomitant]
  17. TYLENOL                                 /SCH/ [Concomitant]
  18. TUMS [Concomitant]
  19. PROSTATE GLAND EXTRACT [Concomitant]
     Dosage: 1 D/F, DAILY (1/D)

REACTIONS (8)
  - ASTHENIA [None]
  - BLOOD POTASSIUM DECREASED [None]
  - DIARRHOEA [None]
  - FATIGUE [None]
  - RASH ERYTHEMATOUS [None]
  - RASH MACULAR [None]
  - RENAL CYST [None]
  - RENAL FAILURE ACUTE [None]
